FAERS Safety Report 4610952-2 (Version None)
Quarter: 2005Q1

REPORT INFORMATION
  Report Type: 
  Country: None (occurrence: None)
  Receive Date: 20050317
  Receipt Date: 20050308
  Transmission Date: 20050727
  Serious: Yes (Death, Hospitalization)
  Sender: FDA-Public Use
  Company Number: GXKR2005DK00721

PATIENT
  Age: 31 Year
  Sex: Female
  Weight: 50 kg

DRUGS (5)
  1. GESTONETTE (NGX) [Suspect]
     Dosage: 1 TABLET
     Route: 048
  2. LEPONEX [Suspect]
     Indication: SCHIZOPHRENIA
     Dosage: UNK, UNK
     Route: 048
  3. ORAP [Concomitant]
     Route: 065
     Dates: start: 20040201
  4. RIVOTRIL [Concomitant]
     Route: 065
     Dates: start: 20040901
  5. ZYPREXA [Concomitant]
     Route: 065
     Dates: start: 20040401

REACTIONS (5)
  - CARDIAC ARREST [None]
  - DYSPNOEA [None]
  - OVARIAN CYST [None]
  - PULMONARY CONGESTION [None]
  - PULMONARY THROMBOSIS [None]
